FAERS Safety Report 8956658 (Version 3)
Quarter: 2013Q1

REPORT INFORMATION
  Report Type: Spontaneous
  Country: US (occurrence: US)
  Receive Date: 20121210
  Receipt Date: 20130305
  Transmission Date: 20140127
  Serious: Yes (Other)
  Sender: FDA-Public Use
  Company Number: US-SHIRE-ALL1-2012-05956

PATIENT
  Age: 20 Year
  Sex: Female
  Weight: 49.89 kg

DRUGS (1)
  1. ADDERALL XR [Suspect]
     Indication: ATTENTION DEFICIT/HYPERACTIVITY DISORDER
     Dosage: 20 MG, 1X/DAY:QD
     Route: 048
     Dates: start: 201208, end: 20121123

REACTIONS (2)
  - Aspartate aminotransferase increased [Recovered/Resolved]
  - Alanine aminotransferase increased [Recovered/Resolved]
